FAERS Safety Report 7473040-6 (Version None)
Quarter: 2011Q2

REPORT INFORMATION
  Report Type: 
  Country: None (occurrence: None)
  Receive Date: 20110511
  Receipt Date: 20110429
  Transmission Date: 20111010
  Serious: Yes (Disabling)
  Sender: FDA-Public Use
  Company Number: DE-ROCHE-767474

PATIENT
  Sex: Female
  Weight: 57 kg

DRUGS (4)
  1. NOVALGIN [Concomitant]
     Indication: PAIN
     Route: 048
     Dates: start: 20110211
  2. XELODA [Suspect]
     Dosage: 6 CYCLES, ON 14 DAYS OF A CYCLE OF 3 WEEKS
     Route: 048
     Dates: start: 20101117
  3. AVASTIN [Suspect]
     Dosage: 6 CYCLES
     Route: 042
     Dates: start: 20101117
  4. TRAMAL LONG [Concomitant]
     Indication: PAIN
     Route: 048
     Dates: start: 20110218

REACTIONS (1)
  - VITH NERVE PARALYSIS [None]
